FAERS Safety Report 11644165 (Version 1)
Quarter: 2015Q4

REPORT INFORMATION
  Report Type: Spontaneous
  Country: US (occurrence: US)
  Receive Date: 20151020
  Receipt Date: 20151020
  Transmission Date: 20160304
  Serious: No
  Sender: FDA-Public Use
  Company Number: US-APOTEX-2015AP007239

PATIENT
  Age: 64 Year
  Sex: Male

DRUGS (2)
  1. NEFAZODONE [Interacting]
     Active Substance: NEFAZODONE
     Indication: DEPRESSION
     Route: 065
  2. FLUTICASONE PROPIONATE. [Suspect]
     Active Substance: FLUTICASONE PROPIONATE
     Indication: RHINITIS ALLERGIC
     Dosage: USED INTERMITTENTLY
     Route: 045

REACTIONS (2)
  - Secondary adrenocortical insufficiency [Recovered/Resolved]
  - Drug interaction [Recovered/Resolved]
